FAERS Safety Report 8540135-5 (Version None)
Quarter: 2012Q3

REPORT INFORMATION
  Report Type: 
  Country: None (occurrence: None)
  Receive Date: 20120726
  Receipt Date: 20120724
  Transmission Date: 20120928
  Serious: Yes (Other)
  Sender: FDA-Public Use
  Company Number: US-PFIZER INC-2012096062

PATIENT
  Sex: Male

DRUGS (1)
  1. CHANTIX [Suspect]
     Indication: SMOKING CESSATION THERAPY
     Dosage: STARTING MONTH PACK 0.5 -1 MG DOSE PACK TABLET
     Dates: start: 20090301, end: 20090421

REACTIONS (8)
  - ABNORMAL BEHAVIOUR [None]
  - ABNORMAL DREAMS [None]
  - MOOD ALTERED [None]
  - SUICIDE ATTEMPT [None]
  - MAJOR DEPRESSION [None]
  - ANXIETY [None]
  - AGGRESSION [None]
  - AGITATION [None]
